FAERS Safety Report 8675291 (Version 4)
Quarter: 2013Q4

REPORT INFORMATION
  Report Type: Spontaneous
  Country: US (occurrence: US)
  Receive Date: 20120720
  Receipt Date: 20131104
  Transmission Date: 20140711
  Serious: Yes (Other)
  Sender: FDA-Public Use
  Company Number: US-PFIZER INC-2012171243

PATIENT
  Age: 79 Year
  Sex: Male
  Weight: 58.96 kg

DRUGS (4)
  1. TOVIAZ [Suspect]
     Indication: RENAL DISORDER
     Dosage: UNK
     Route: 048
     Dates: start: 2011
  2. TOVIAZ [Suspect]
     Dosage: 4 MG, 1X/DAY
     Route: 048
     Dates: start: 201201, end: 2012
  3. TOVIAZ [Suspect]
     Dosage: 8 MG, 1X/DAY
     Route: 048
     Dates: start: 2012, end: 2012
  4. TOVIAZ [Suspect]
     Dosage: 8 MG, 2X/DAY
     Route: 048
     Dates: start: 2012

REACTIONS (7)
  - Diabetes mellitus [Not Recovered/Not Resolved]
  - Renal disorder [Not Recovered/Not Resolved]
  - Gastric disorder [Not Recovered/Not Resolved]
  - Weight decreased [Not Recovered/Not Resolved]
  - General physical health deterioration [Unknown]
  - Pollakiuria [Recovered/Resolved]
  - Incorrect dose administered [Unknown]
